FAERS Safety Report 12915386 (Version 2)
Quarter: 2017Q1

REPORT INFORMATION
  Report Type: Spontaneous
  Country: US (occurrence: US)
  Receive Date: 20161106
  Receipt Date: 20170216
  Transmission Date: 20170428
  Serious: No
  Sender: FDA-Public Use
  Company Number: US-RELYPSA-RLY2016002848

PATIENT
  Age: 64 Year
  Sex: Male

DRUGS (15)
  1. RENVELA [Concomitant]
     Active Substance: SEVELAMER CARBONATE
  2. SPIRONOLACTONE. [Concomitant]
     Active Substance: SPIRONOLACTONE
  3. VICTOZA [Concomitant]
     Active Substance: LIRAGLUTIDE
  4. ASPIRIN. [Concomitant]
     Active Substance: ASPIRIN
  5. DULCOLAX NOS [Concomitant]
     Active Substance: BISACODYL OR DOCUSATE SODIUM
     Indication: CONSTIPATION
  6. PROCARDIA [Concomitant]
     Active Substance: NIFEDIPINE
  7. CALCITRIOL. [Concomitant]
     Active Substance: CALCITRIOL
  8. LEVEMIR [Concomitant]
     Active Substance: INSULIN DETEMIR
     Dosage: UNK, QD
  9. METOPROLOL. [Concomitant]
     Active Substance: METOPROLOL
  10. LISINOPRIL. [Concomitant]
     Active Substance: LISINOPRIL
  11. VELTASSA [Suspect]
     Active Substance: PATIROMER
     Indication: HYPERKALAEMIA
     Dosage: 8.4 G, QD
     Route: 048
     Dates: start: 20160824
  12. LOVASTATIN. [Concomitant]
     Active Substance: LOVASTATIN
  13. CHOLECALCIFEROL [Concomitant]
     Active Substance: CHOLECALCIFEROL
  14. FUROSEMIDE. [Concomitant]
     Active Substance: FUROSEMIDE
  15. GLIPIZIDE. [Concomitant]
     Active Substance: GLIPIZIDE
     Dosage: UNK

REACTIONS (1)
  - Constipation [Not Recovered/Not Resolved]

NARRATIVE: CASE EVENT DATE: 201608
